FAERS Safety Report 4989992-X (Version None)
Quarter: 2006Q2

REPORT INFORMATION
  Report Type: 
  Country: None (occurrence: None)
  Receive Date: 20060428
  Receipt Date: 20060419
  Transmission Date: 20061013
  Serious: Yes (Other)
  Sender: FDA-Public Use
  Company Number: 200610527BVD

PATIENT

DRUGS (2)
  1. ASPIRIN [Suspect]
     Indication: MYOCARDIAL INFARCTION
  2. ASPIRIN [Suspect]
     Indication: PROPHYLAXIS

REACTIONS (1)
  - MENINGITIS ASEPTIC [None]
